FAERS Safety Report 7278787-2 (Version None)
Quarter: 2011Q1

REPORT INFORMATION
  Report Type: 
  Country: None (occurrence: None)
  Receive Date: 20110207
  Receipt Date: 20110127
  Transmission Date: 20110831
  Serious: Yes (Death)
  Sender: FDA-Public Use
  Company Number: FR-BAXTER-2011BH002581

PATIENT

DRUGS (5)
  1. DOXORUBICIN GENERIC [Suspect]
     Indication: BONE SARCOMA
     Route: 042
  2. IFOSFAMIDE [Suspect]
     Indication: BONE SARCOMA
     Route: 042
  3. CISPLATIN [Suspect]
     Indication: BONE SARCOMA
     Route: 042
  4. GRANULOCYTE COLONY STIMULATING FACTOR [Concomitant]
     Indication: PROPHYLAXIS
     Route: 058
  5. MESNA [Concomitant]
     Indication: PROPHYLAXIS
     Route: 042

REACTIONS (1)
  - MYELODYSPLASTIC SYNDROME [None]
